FAERS Safety Report 9425300 (Version 1)
Quarter: 2013Q3

REPORT INFORMATION
  Report Type: Spontaneous
  Country: IN (occurrence: IN)
  Receive Date: 20130729
  Receipt Date: 20130729
  Transmission Date: 20140515
  Serious: Yes (Hospitalization)
  Sender: FDA-Public Use
  Company Number: PHHY2013IN078268

PATIENT
  Age: 20 Month
  Sex: Male

DRUGS (5)
  1. SALBUTAMOL [Suspect]
  2. IPRATROPIUM+SALBUTAMOL [Interacting]
     Dosage: 3 DF, UNK
  3. HYDROCORTISONE [Interacting]
  4. AMOXICILLIN [Concomitant]
     Route: 048
  5. SALBUTAMOL [Concomitant]
     Route: 048

REACTIONS (6)
  - Metabolic acidosis [Recovering/Resolving]
  - Hyperventilation [Recovering/Resolving]
  - Tachypnoea [Recovered/Resolved]
  - Blood glucose increased [Recovering/Resolving]
  - Toxicity to various agents [Recovering/Resolving]
  - Drug interaction [Unknown]
